FAERS Safety Report 20157256 (Version 1)
Quarter: 2021Q4

REPORT INFORMATION
  Report Type: Spontaneous
  Country: CO (occurrence: CO)
  Receive Date: 20211207
  Receipt Date: 20211207
  Transmission Date: 20220303
  Serious: Yes (Other)
  Sender: FDA-Public Use
  Company Number: CO-PFIZER INC-202101695119

PATIENT
  Sex: Female

DRUGS (1)
  1. TYGACIL [Suspect]
     Active Substance: TIGECYCLINE
     Indication: Abdominal sepsis
     Dosage: 50 MG, 2X/DAY (EVERY 12 HRS. FOR 14 DAYS)

REACTIONS (1)
  - Somnolence [Recovered/Resolved]
